FAERS Safety Report 4785550-0 (Version None)
Quarter: 2005Q4

REPORT INFORMATION
  Report Type: 
  Country: None (occurrence: None)
  Receive Date: 20051003
  Receipt Date: 20050901
  Transmission Date: 20060501
  Serious: Yes (Life-Threatening)
  Sender: FDA-Public Use
  Company Number: US-GLAXOSMITHKLINE-A0572763A

PATIENT
  Sex: Female

DRUGS (1)
  1. PAXIL CR [Suspect]
     Indication: DEPRESSION
     Dosage: 12.5MG PER DAY
     Route: 048

REACTIONS (4)
  - DECREASED APPETITE [None]
  - DECREASED INTEREST [None]
  - SUICIDAL IDEATION [None]
  - WEIGHT FLUCTUATION [None]
